FAERS Safety Report 20790482 (Version 1)
Quarter: 2022Q2

REPORT INFORMATION
  Report Type: Report from Study
  Country: IT (occurrence: IT)
  Receive Date: 20220505
  Receipt Date: 20220505
  Transmission Date: 20220721
  Serious: Yes (Life-Threatening)
  Sender: FDA-Public Use
  Company Number: None

PATIENT
  Age: 62 Year
  Sex: Male

DRUGS (1)
  1. ALPRAZOLAM [Suspect]
     Active Substance: ALPRAZOLAM
     Indication: Drug abuse
     Dosage: 70DF
     Route: 048
     Dates: start: 20220405, end: 20220405

REACTIONS (9)
  - Drug abuse [Unknown]
  - Hyporesponsive to stimuli [Unknown]
  - Lactic acidosis [Unknown]
  - Thinking abnormal [Unknown]
  - Sopor [Unknown]
  - Negativism [Unknown]
  - Aggression [Unknown]
  - Alcohol abuse [Unknown]
  - Agitation [Unknown]

NARRATIVE: CASE EVENT DATE: 20220405
